FAERS Safety Report 4276458-8 (Version None)
Quarter: 2004Q1

REPORT INFORMATION
  Report Type: 
  Country: None (occurrence: None)
  Receive Date: 20040121
  Receipt Date: 20040121
  Transmission Date: 20041129
  Serious: No
  Sender: FDA-Public Use
  Company Number: None

PATIENT
  Age: 56 Year
  Sex: Male
  Weight: 106 kg

DRUGS (2)
  1. OLANZAPINE [Suspect]
     Indication: SCHIZOAFFECTIVE DISORDER
     Dosage: 10 MG QHS ORAL
     Route: 048
     Dates: start: 20031201, end: 20040107
  2. OLANZAPINE [Suspect]
     Indication: SCHIZOPHRENIA
     Dosage: 10 MG QHS ORAL
     Route: 048
     Dates: start: 20031201, end: 20040107

REACTIONS (1)
  - BLOOD GLUCOSE INCREASED [None]
